FAERS Safety Report 5615196-3 (Version None)
Quarter: 2008Q1

REPORT INFORMATION
  Report Type: 
  Country: None (occurrence: None)
  Receive Date: 20080131
  Receipt Date: 20080116
  Transmission Date: 20080703
  Serious: Yes (Hospitalization)
  Sender: FDA-Public Use
  Company Number: CAP08000019

PATIENT
  Sex: Female

DRUGS (3)
  1. DIDROCAL(ETIDRONATE DISODIUM / CALCIUM CARBONATE CYCLICAL) TABLET, 400 [Suspect]
     Indication: OSTEOPOROSIS
     Dosage: 1 TABLET CYCLIC DAILY, ORAL
     Route: 048
     Dates: start: 20070101, end: 20070601
  2. DIDROCAL(ETIDRONATE DISODIUM / CALCIUM CARBONATE CYCLICAL) TABLET, 400 [Suspect]
     Indication: OSTEOPOROSIS
     Dosage: 1 TABLET CYCLIC DAILY, ORAL
     Route: 048
     Dates: start: 20070901
  3. OTHER ANTIHYPERTENSIVES [Concomitant]

REACTIONS (1)
  - CLOSTRIDIUM DIFFICILE COLITIS [None]
